FAERS Safety Report 18669717 (Version 1)
Quarter: 2020Q4

REPORT INFORMATION
  Report Type: Spontaneous
  Country: TR (occurrence: TR)
  Receive Date: 20201228
  Receipt Date: 20201228
  Transmission Date: 20210114
  Serious: Yes (Hospitalization)
  Sender: FDA-Public Use
  Company Number: TR-TEVA-2020-TR-1863076

PATIENT
  Age: 3 Decade
  Sex: Male

DRUGS (3)
  1. BLEOMYCIN [Suspect]
     Active Substance: BLEOMYCIN SULFATE
     Indication: GERM CELL CANCER
     Dosage: RECEIVED 2 CYCLES
     Route: 065
     Dates: start: 2008
  2. CISPLATIN. [Suspect]
     Active Substance: CISPLATIN
     Indication: GERM CELL CANCER
     Dosage: RECEIVED 2 CYCLES
     Route: 065
     Dates: start: 2008
  3. ETOPOSIDE. [Suspect]
     Active Substance: ETOPOSIDE
     Indication: GERM CELL CANCER
     Dosage: RECEIVED 2 CYCLES
     Route: 065
     Dates: start: 2008

REACTIONS (1)
  - Ewing^s sarcoma [Recovered/Resolved]
